FAERS Safety Report 5445765-5 (Version None)
Quarter: 2007Q3

REPORT INFORMATION
  Report Type: 
  Country: None (occurrence: None)
  Receive Date: 20070831
  Receipt Date: 20070820
  Transmission Date: 20080115
  Serious: Yes (Other)
  Sender: FDA-Public Use
  Company Number: 2007329251

PATIENT
  Age: 51 Year
  Sex: Female
  Weight: 63 kg

DRUGS (6)
  1. LISTERINE (MENTHOL, METHYL SALICYLATE, EUCALYPTOL, THYMOL) [Suspect]
     Indication: DENTAL DISORDER PROPHYLAXIS
     Dosage: ONE LID ORAL
     Route: 048
     Dates: start: 20030101
  2. LORAX (LORACARBEF) [Concomitant]
  3. DUSPATALIN DUPHAR (MEBEVERINE HYDROCHLORIDE) [Concomitant]
  4. SIMVASTATIN [Concomitant]
  5. VITAMIN C (VITAMIN C) [Concomitant]
  6. ZINC (ZINC) [Concomitant]

REACTIONS (1)
  - LIP AND/OR ORAL CAVITY CANCER [None]
